FAERS Safety Report 7787487-1 (Version None)
Quarter: 2011Q3

REPORT INFORMATION
  Report Type: 
  Country: None (occurrence: None)
  Receive Date: 20110929
  Receipt Date: 20110923
  Transmission Date: 20111222
  Serious: Yes (Life-Threatening, Hospitalization, Other)
  Sender: FDA-Public Use
  Company Number: GXKR2011DE02909

PATIENT
  Age: 50 Year
  Sex: Female
  Weight: 86 kg

DRUGS (7)
  1. METOCLOPRAMIDE HYDROCHLORIDE [Suspect]
     Indication: NAUSEA
     Dosage: 4.4 MG, TID
     Route: 048
  2. LOPERAMIDE [Suspect]
     Indication: DIARRHOEA
     Dosage: 4 MG, QD
     Route: 048
     Dates: start: 20110722, end: 20110722
  3. RAMIPRIL [Suspect]
     Indication: HYPERTENSION
     Dosage: 10 MG, BID
     Route: 048
     Dates: start: 20100101, end: 20110727
  4. NOVAMINSULFON-RATIOPHARM [Suspect]
     Indication: PAIN
     Dosage: 500 MG, TID
     Dates: start: 20110725, end: 20110727
  5. IBUPROFEN [Suspect]
     Indication: PAIN
     Dosage: 800 MG, TID
     Route: 048
     Dates: start: 20110721, end: 20110724
  6. METFORMIN HCL [Concomitant]
     Indication: TYPE 2 DIABETES MELLITUS
     Dosage: 1000 MG, TID
     Route: 048
     Dates: start: 20100101, end: 20110728
  7. METOPROLOL RATIOPHARM COMP. [Concomitant]
     Indication: HYPERTENSION
     Dosage: 1 DF, QD
     Route: 048

REACTIONS (3)
  - NAUSEA [None]
  - VOMITING [None]
  - RENAL FAILURE ACUTE [None]
